FAERS Safety Report 8066099-9 (Version None)
Quarter: 2012Q1

REPORT INFORMATION
  Report Type: 
  Country: None (occurrence: None)
  Receive Date: 20120124
  Receipt Date: 20120117
  Transmission Date: 20120608
  Serious: Yes (Other)
  Sender: FDA-Public Use
  Company Number: US-JNJFOC-20110201579

PATIENT
  Sex: Female

DRUGS (2)
  1. LEVAQUIN [Suspect]
     Indication: PRODUCT USED FOR UNKNOWN INDICATION
     Route: 048
     Dates: start: 20080619, end: 20090625
  2. MEDROL [Suspect]
     Indication: INFLAMMATION
     Route: 048

REACTIONS (2)
  - TENDONITIS [None]
  - ROTATOR CUFF SYNDROME [None]
